FAERS Safety Report 15996274 (Version 1)
Quarter: 2019Q1

REPORT INFORMATION
  Report Type: Spontaneous
  Country: US (occurrence: US)
  Receive Date: 20190222
  Receipt Date: 20190222
  Transmission Date: 20190418
  Serious: Yes (Other)
  Sender: FDA-Public Use
  Company Number: None

PATIENT
  Age: 63 Year
  Sex: Female
  Weight: 43.43 kg

DRUGS (1)
  1. INTRAROSA [Suspect]
     Active Substance: PRASTERONE
     Indication: VULVOVAGINAL PAIN
     Dosage: ?          QUANTITY:1 VAGINAL INSERT;OTHER ROUTE:INSERTED DEEP INTO VAGINA?
     Dates: start: 20180623, end: 20190220

REACTIONS (2)
  - Insomnia [None]
  - Bladder pain [None]

NARRATIVE: CASE EVENT DATE: 20190208
